FAERS Safety Report 23328518 (Version 5)
Quarter: 2025Q1

REPORT INFORMATION
  Report Type: Spontaneous
  Country: CA (occurrence: CA)
  Receive Date: 20231221
  Receipt Date: 20250326
  Transmission Date: 20250409
  Serious: Yes (Other)
  Sender: SANDOZ
  Company Number: CA-SANDOZ-SDZ2023CA071336

PATIENT
  Age: 53 Year
  Sex: Male

DRUGS (289)
  1. ADALIMUMAB [Suspect]
     Active Substance: ADALIMUMAB
     Indication: Crohn^s disease
     Route: 058
  2. ADALIMUMAB [Suspect]
     Active Substance: ADALIMUMAB
     Indication: Colitis ulcerative
  3. ADALIMUMAB [Suspect]
     Active Substance: ADALIMUMAB
     Indication: Crohn^s disease
     Route: 065
  4. ADALIMUMAB [Suspect]
     Active Substance: ADALIMUMAB
     Indication: Colitis ulcerative
  5. ALBENDAZOLE [Suspect]
     Active Substance: ALBENDAZOLE
     Indication: Deep vein thrombosis
     Route: 042
  6. ALBENDAZOLE [Suspect]
     Active Substance: ALBENDAZOLE
     Indication: Colitis ulcerative
  7. ASACOL [Suspect]
     Active Substance: MESALAMINE
     Dosage: 1 DF, BID
     Route: 065
  8. ASACOL [Suspect]
     Active Substance: MESALAMINE
     Route: 065
  9. ASACOL [Suspect]
     Active Substance: MESALAMINE
     Dosage: 12 DF, QD
     Route: 065
  10. ASACOL [Suspect]
     Active Substance: MESALAMINE
     Indication: Colitis ulcerative
     Dosage: 2.4 G, QD
     Route: 065
  11. ASACOL [Suspect]
     Active Substance: MESALAMINE
     Dosage: 3 G, QD
     Route: 065
  12. ASACOL [Suspect]
     Active Substance: MESALAMINE
     Dosage: 3 DF, BID
     Route: 065
  13. ASACOL [Suspect]
     Active Substance: MESALAMINE
     Dosage: 3 DF, BID
     Route: 065
  14. ASACOL [Suspect]
     Active Substance: MESALAMINE
     Dosage: 3 DF, BID
     Route: 065
  15. ASACOL [Suspect]
     Active Substance: MESALAMINE
     Dosage: 4.8 G, QD
     Route: 065
  16. ASACOL [Suspect]
     Active Substance: MESALAMINE
     Dosage: 4.8 G, QD
     Route: 065
  17. ASACOL [Suspect]
     Active Substance: MESALAMINE
     Dosage: 4.8 G, BID
     Route: 065
  18. ASACOL [Suspect]
     Active Substance: MESALAMINE
     Route: 065
  19. ASACOL [Suspect]
     Active Substance: MESALAMINE
     Dosage: 6 DF, QD
     Route: 065
  20. ASACOL [Suspect]
     Active Substance: MESALAMINE
     Dosage: 6 DF, QD
     Route: 065
  21. ASACOL [Suspect]
     Active Substance: MESALAMINE
     Route: 065
  22. ASACOL [Suspect]
     Active Substance: MESALAMINE
     Route: 065
  23. ASACOL [Suspect]
     Active Substance: MESALAMINE
     Route: 065
  24. ASPIRIN [Suspect]
     Active Substance: ASPIRIN
     Indication: Product used for unknown indication
     Route: 065
  25. BUDESONIDE [Suspect]
     Active Substance: BUDESONIDE
     Dosage: 1 DF, QD
     Route: 048
  26. BUDESONIDE [Suspect]
     Active Substance: BUDESONIDE
     Dosage: 1 DF, QD
     Route: 048
  27. BUDESONIDE [Suspect]
     Active Substance: BUDESONIDE
     Dosage: 1 DF, QD
     Route: 048
  28. BUDESONIDE [Suspect]
     Active Substance: BUDESONIDE
     Dosage: 1 DF, QD
     Route: 048
  29. BUDESONIDE [Suspect]
     Active Substance: BUDESONIDE
     Dosage: 1 DF, Q24H
     Route: 048
  30. BUDESONIDE [Suspect]
     Active Substance: BUDESONIDE
     Dosage: 1 DF, BID
     Route: 065
  31. BUDESONIDE [Suspect]
     Active Substance: BUDESONIDE
     Route: 048
  32. BUDESONIDE [Suspect]
     Active Substance: BUDESONIDE
     Route: 065
  33. BUDESONIDE [Suspect]
     Active Substance: BUDESONIDE
     Route: 065
  34. BUDESONIDE [Suspect]
     Active Substance: BUDESONIDE
     Route: 065
  35. BUDESONIDE [Suspect]
     Active Substance: BUDESONIDE
     Dosage: 8 DF, QD
     Route: 048
  36. BUDESONIDE [Suspect]
     Active Substance: BUDESONIDE
     Dosage: 8 DF, QD
     Route: 048
  37. BUDESONIDE [Suspect]
     Active Substance: BUDESONIDE
     Dosage: 8 DF, QD
     Route: 048
  38. BUDESONIDE [Suspect]
     Active Substance: BUDESONIDE
     Dosage: 8 DF, BID
     Route: 065
  39. BUDESONIDE [Suspect]
     Active Substance: BUDESONIDE
     Route: 048
  40. BUDESONIDE [Suspect]
     Active Substance: BUDESONIDE
     Route: 048
  41. BUDESONIDE [Suspect]
     Active Substance: BUDESONIDE
     Dosage: UNK, QD
     Route: 048
  42. BUDESONIDE [Suspect]
     Active Substance: BUDESONIDE
     Dosage: UNK, Q24H
     Route: 048
  43. BUDESONIDE [Suspect]
     Active Substance: BUDESONIDE
     Indication: Colitis ulcerative
     Route: 048
  44. BUDESONIDE [Suspect]
     Active Substance: BUDESONIDE
     Route: 065
  45. BUDESONIDE [Suspect]
     Active Substance: BUDESONIDE
     Route: 065
  46. BUDESONIDE [Suspect]
     Active Substance: BUDESONIDE
     Route: 048
  47. BUDESONIDE [Suspect]
     Active Substance: BUDESONIDE
     Route: 048
  48. BUDESONIDE [Suspect]
     Active Substance: BUDESONIDE
     Route: 065
  49. BUDESONIDE [Suspect]
     Active Substance: BUDESONIDE
     Route: 065
  50. BUDESONIDE [Suspect]
     Active Substance: BUDESONIDE
     Route: 065
  51. CANDESARTAN CILEXETIL [Suspect]
     Active Substance: CANDESARTAN CILEXETIL
     Indication: Product used for unknown indication
     Route: 048
  52. AZD-1222 [Suspect]
     Active Substance: AZD-1222
     Indication: COVID-19 immunisation
     Route: 065
  53. AZD-1222 [Suspect]
     Active Substance: AZD-1222
     Route: 065
  54. CORTIFOAM [Suspect]
     Active Substance: HYDROCORTISONE ACETATE
     Dosage: 1 DF, QD
     Route: 048
  55. CORTIFOAM [Suspect]
     Active Substance: HYDROCORTISONE ACETATE
     Dosage: 1 DF, QD
     Route: 048
  56. CORTIFOAM [Suspect]
     Active Substance: HYDROCORTISONE ACETATE
     Dosage: 1 DF, QD
     Route: 048
  57. CORTIFOAM [Suspect]
     Active Substance: HYDROCORTISONE ACETATE
     Dosage: 8 DF, QD
     Route: 048
  58. CORTIFOAM [Suspect]
     Active Substance: HYDROCORTISONE ACETATE
     Indication: Colitis ulcerative
     Route: 048
  59. CORTIFOAM [Suspect]
     Active Substance: HYDROCORTISONE ACETATE
     Route: 065
  60. CORTIFOAM [Suspect]
     Active Substance: HYDROCORTISONE ACETATE
     Dosage: UNK, BID
     Route: 065
  61. CORTIFOAM [Suspect]
     Active Substance: HYDROCORTISONE ACETATE
     Indication: Deep vein thrombosis
     Route: 048
  62. CORTIFOAM [Suspect]
     Active Substance: HYDROCORTISONE ACETATE
     Route: 065
  63. CORTIFOAM [Suspect]
     Active Substance: HYDROCORTISONE ACETATE
     Route: 065
  64. CORTIFOAM [Suspect]
     Active Substance: HYDROCORTISONE ACETATE
     Route: 065
  65. CORTIFOAM [Suspect]
     Active Substance: HYDROCORTISONE ACETATE
     Route: 065
  66. HYDROCORTISONE ACETATE [Suspect]
     Active Substance: HYDROCORTISONE ACETATE
     Indication: Colitis ulcerative
     Dosage: 1 DF, QD
     Route: 048
  67. HYDROCORTISONE ACETATE [Suspect]
     Active Substance: HYDROCORTISONE ACETATE
     Dosage: 1 DF, BID
     Route: 048
  68. HYDROCORTISONE ACETATE [Suspect]
     Active Substance: HYDROCORTISONE ACETATE
     Dosage: 1 DF, BID
     Route: 065
  69. HYDROCORTISONE ACETATE [Suspect]
     Active Substance: HYDROCORTISONE ACETATE
     Route: 065
  70. HYDROCORTISONE ACETATE [Suspect]
     Active Substance: HYDROCORTISONE ACETATE
     Route: 048
  71. HYDROCORTISONE ACETATE [Suspect]
     Active Substance: HYDROCORTISONE ACETATE
     Route: 048
  72. HYDROCORTISONE ACETATE [Suspect]
     Active Substance: HYDROCORTISONE ACETATE
     Route: 048
  73. HYDROCORTISONE ACETATE [Suspect]
     Active Substance: HYDROCORTISONE ACETATE
     Route: 065
  74. HYDROCORTISONE ACETATE [Suspect]
     Active Substance: HYDROCORTISONE ACETATE
     Route: 048
  75. HYDROCORTISONE ACETATE [Suspect]
     Active Substance: HYDROCORTISONE ACETATE
     Route: 065
  76. HYDROCORTISONE ACETATE [Suspect]
     Active Substance: HYDROCORTISONE ACETATE
     Route: 065
  77. HYDROCORTISONE ACETATE [Suspect]
     Active Substance: HYDROCORTISONE ACETATE
     Route: 065
  78. HYDROCORTISONE ACETATE [Suspect]
     Active Substance: HYDROCORTISONE ACETATE
     Route: 065
  79. HYDROCORTISONE ACETATE [Suspect]
     Active Substance: HYDROCORTISONE ACETATE
     Route: 065
  80. CORTISONE [Suspect]
     Active Substance: CORTISONE
     Indication: Colitis ulcerative
     Route: 065
  81. CORTISONE [Suspect]
     Active Substance: CORTISONE
     Route: 065
  82. CORTISONE [Suspect]
     Active Substance: CORTISONE
     Indication: Crohn^s disease
     Dosage: UNK, QD
     Route: 048
  83. CORTISONE [Suspect]
     Active Substance: CORTISONE
     Dosage: UNK,
     Route: 065
  84. CORTISONE [Suspect]
     Active Substance: CORTISONE
     Dosage: UNK, BID
     Route: 065
  85. CORTISONE [Suspect]
     Active Substance: CORTISONE
     Route: 048
  86. CORTISONE [Suspect]
     Active Substance: CORTISONE
     Route: 065
  87. CORTISONE [Suspect]
     Active Substance: CORTISONE
     Route: 065
  88. CORTISONE [Suspect]
     Active Substance: CORTISONE
     Route: 065
  89. CORTISONE [Suspect]
     Active Substance: CORTISONE
     Route: 065
  90. CORTISONE [Suspect]
     Active Substance: CORTISONE
     Route: 065
  91. CORTISONE [Suspect]
     Active Substance: CORTISONE
     Route: 065
  92. CORTISONE [Suspect]
     Active Substance: CORTISONE
     Route: 065
  93. DAPAGLIFLOZIN [Suspect]
     Active Substance: DAPAGLIFLOZIN
     Indication: Ill-defined disorder
     Route: 065
  94. ESCITALOPRAM [Suspect]
     Active Substance: ESCITALOPRAM OXALATE
     Indication: Product used for unknown indication
     Route: 065
  95. ESOMEPRAZOLE [Suspect]
     Active Substance: ESOMEPRAZOLE
     Indication: Gastritis
     Route: 065
  96. ENTYVIO [Suspect]
     Active Substance: VEDOLIZUMAB
     Dosage: 1 DF, BID
     Route: 048
  97. ENTYVIO [Suspect]
     Active Substance: VEDOLIZUMAB
     Dosage: 1 DF, BID
     Route: 048
  98. ENTYVIO [Suspect]
     Active Substance: VEDOLIZUMAB
     Indication: Deep vein thrombosis
     Route: 065
  99. ENTYVIO [Suspect]
     Active Substance: VEDOLIZUMAB
     Route: 042
  100. ENTYVIO [Suspect]
     Active Substance: VEDOLIZUMAB
     Route: 065
  101. ENTYVIO [Suspect]
     Active Substance: VEDOLIZUMAB
     Route: 048
  102. ENTYVIO [Suspect]
     Active Substance: VEDOLIZUMAB
     Dosage: UNK, QD
     Route: 048
  103. ENTYVIO [Suspect]
     Active Substance: VEDOLIZUMAB
     Dosage: UNK, BID
     Route: 065
  104. ENTYVIO [Suspect]
     Active Substance: VEDOLIZUMAB
     Indication: Colitis ulcerative
     Route: 042
  105. ENTYVIO [Suspect]
     Active Substance: VEDOLIZUMAB
     Route: 042
  106. ENTYVIO [Suspect]
     Active Substance: VEDOLIZUMAB
     Route: 048
  107. ENTYVIO [Suspect]
     Active Substance: VEDOLIZUMAB
     Route: 065
  108. ENTYVIO [Suspect]
     Active Substance: VEDOLIZUMAB
     Route: 065
  109. ENTYVIO [Suspect]
     Active Substance: VEDOLIZUMAB
     Route: 065
  110. ENTYVIO [Suspect]
     Active Substance: VEDOLIZUMAB
     Route: 048
  111. ENTYVIO [Suspect]
     Active Substance: VEDOLIZUMAB
     Route: 065
  112. ENTYVIO [Suspect]
     Active Substance: VEDOLIZUMAB
     Route: 048
  113. ENTYVIO [Suspect]
     Active Substance: VEDOLIZUMAB
     Indication: Colitis ulcerative
     Route: 042
  114. ENTYVIO [Suspect]
     Active Substance: VEDOLIZUMAB
     Route: 042
  115. ENTYVIO [Suspect]
     Active Substance: VEDOLIZUMAB
     Indication: Deep vein thrombosis
     Route: 048
  116. ENTYVIO [Suspect]
     Active Substance: VEDOLIZUMAB
     Route: 065
  117. ENTYVIO [Suspect]
     Active Substance: VEDOLIZUMAB
     Route: 065
  118. ENTYVIO [Suspect]
     Active Substance: VEDOLIZUMAB
     Route: 065
  119. EPINEPHRINE HYDROCHLORIDE [Suspect]
     Active Substance: EPINEPHRINE HYDROCHLORIDE
     Indication: Product used for unknown indication
     Route: 065
  120. FELODIPINE [Suspect]
     Active Substance: FELODIPINE
     Indication: Product used for unknown indication
     Route: 065
  121. FUROSEMIDE [Suspect]
     Active Substance: FUROSEMIDE
     Indication: Product used for unknown indication
     Route: 065
  122. GABAPENTIN [Suspect]
     Active Substance: GABAPENTIN
     Indication: Product used for unknown indication
     Route: 065
  123. HYDROCORTISONE [Suspect]
     Active Substance: HYDROCORTISONE
     Dosage: 1 DF, QD
     Route: 065
  124. HYDROCORTISONE [Suspect]
     Active Substance: HYDROCORTISONE
     Dosage: 3 DF, BID
     Route: 048
  125. HYDROCORTISONE [Suspect]
     Active Substance: HYDROCORTISONE
     Route: 065
  126. HYDROCORTISONE [Suspect]
     Active Substance: HYDROCORTISONE
     Route: 065
  127. HYDROCORTISONE [Suspect]
     Active Substance: HYDROCORTISONE
     Indication: Crohn^s disease
     Route: 048
  128. HYDROCORTISONE [Suspect]
     Active Substance: HYDROCORTISONE
     Route: 048
  129. HYDROCORTISONE [Suspect]
     Active Substance: HYDROCORTISONE
     Route: 048
  130. HYDROCORTISONE [Suspect]
     Active Substance: HYDROCORTISONE
     Indication: Colitis ulcerative
     Dosage: UNK, QD
     Route: 048
  131. HYDROCORTISONE [Suspect]
     Active Substance: HYDROCORTISONE
     Route: 065
  132. HYDROCORTISONE [Suspect]
     Active Substance: HYDROCORTISONE
     Route: 065
  133. HYDROCORTISONE [Suspect]
     Active Substance: HYDROCORTISONE
     Route: 065
  134. HYDROCORTISONE [Suspect]
     Active Substance: HYDROCORTISONE
     Route: 048
  135. INFLIXIMAB [Suspect]
     Active Substance: INFLIXIMAB
     Route: 042
  136. INFLIXIMAB [Suspect]
     Active Substance: INFLIXIMAB
     Route: 042
  137. INFLIXIMAB [Suspect]
     Active Substance: INFLIXIMAB
     Route: 042
  138. INFLIXIMAB [Suspect]
     Active Substance: INFLIXIMAB
     Route: 065
  139. INFLIXIMAB [Suspect]
     Active Substance: INFLIXIMAB
     Route: 065
  140. INFLIXIMAB [Suspect]
     Active Substance: INFLIXIMAB
     Route: 042
  141. INFLIXIMAB [Suspect]
     Active Substance: INFLIXIMAB
     Route: 042
  142. INFLIXIMAB [Suspect]
     Active Substance: INFLIXIMAB
     Route: 065
  143. INFLIXIMAB [Suspect]
     Active Substance: INFLIXIMAB
     Route: 065
  144. INFLIXIMAB [Suspect]
     Active Substance: INFLIXIMAB
     Route: 065
  145. INFLIXIMAB [Suspect]
     Active Substance: INFLIXIMAB
     Route: 065
  146. INFLIXIMAB [Suspect]
     Active Substance: INFLIXIMAB
     Route: 065
  147. INFLIXIMAB [Suspect]
     Active Substance: INFLIXIMAB
     Indication: Crohn^s disease
     Route: 042
  148. INFLIXIMAB [Suspect]
     Active Substance: INFLIXIMAB
     Indication: Colitis ulcerative
     Route: 042
  149. INFLIXIMAB [Suspect]
     Active Substance: INFLIXIMAB
     Route: 065
  150. INFLIXIMAB [Suspect]
     Active Substance: INFLIXIMAB
     Route: 042
  151. INFLIXIMAB [Suspect]
     Active Substance: INFLIXIMAB
     Route: 065
  152. INFLIXIMAB [Suspect]
     Active Substance: INFLIXIMAB
     Route: 065
  153. LEVOTHYROXINE SODIUM [Suspect]
     Active Substance: LEVOTHYROXINE SODIUM
     Indication: Product used for unknown indication
     Route: 065
  154. LISDEXAMFETAMINE DIMESYLATE [Suspect]
     Active Substance: LISDEXAMFETAMINE DIMESYLATE
     Indication: Attention deficit hyperactivity disorder
     Route: 065
  155. METFORMIN [Suspect]
     Active Substance: METFORMIN HYDROCHLORIDE
     Indication: Product used for unknown indication
     Route: 065
  156. MEBEVERINE HYDROCHLORIDE [Suspect]
     Active Substance: MEBEVERINE HYDROCHLORIDE
     Indication: Product used for unknown indication
     Route: 065
  157. MESALAMINE [Suspect]
     Active Substance: MESALAMINE
     Dosage: 2.4 G, QD
     Route: 065
  158. MESALAMINE [Suspect]
     Active Substance: MESALAMINE
     Dosage: 3 G, QD
     Route: 065
  159. MESALAMINE [Suspect]
     Active Substance: MESALAMINE
     Dosage: 3 DF
     Route: 065
  160. MESALAMINE [Suspect]
     Active Substance: MESALAMINE
     Dosage: 3 DF, BID
     Route: 065
  161. MESALAMINE [Suspect]
     Active Substance: MESALAMINE
     Dosage: 3 DF, BID
     Route: 065
  162. MESALAMINE [Suspect]
     Active Substance: MESALAMINE
     Dosage: 4.8 G, QD
     Route: 065
  163. MESALAMINE [Suspect]
     Active Substance: MESALAMINE
     Dosage: 4.8 G, QD
     Route: 065
  164. MESALAMINE [Suspect]
     Active Substance: MESALAMINE
     Dosage: 4.8 G, QD
     Route: 065
  165. MESALAMINE [Suspect]
     Active Substance: MESALAMINE
     Dosage: 4.8 G, QD
     Route: 065
  166. MESALAMINE [Suspect]
     Active Substance: MESALAMINE
     Indication: Colitis ulcerative
     Dosage: 4.8 MG, QD
     Route: 065
  167. MESALAMINE [Suspect]
     Active Substance: MESALAMINE
     Dosage: 4.8 MG, QD
     Route: 065
  168. MESALAMINE [Suspect]
     Active Substance: MESALAMINE
     Dosage: 4.8 MG, QD
     Route: 065
  169. MESALAMINE [Suspect]
     Active Substance: MESALAMINE
     Route: 065
  170. MESALAMINE [Suspect]
     Active Substance: MESALAMINE
     Route: 065
  171. MESALAMINE [Suspect]
     Active Substance: MESALAMINE
     Route: 048
  172. MESALAMINE [Suspect]
     Active Substance: MESALAMINE
     Route: 065
  173. MESALAMINE [Suspect]
     Active Substance: MESALAMINE
     Route: 065
  174. MESALAMINE [Suspect]
     Active Substance: MESALAMINE
     Route: 065
  175. MESALAMINE [Suspect]
     Active Substance: MESALAMINE
     Route: 065
  176. MESALAMINE [Suspect]
     Active Substance: MESALAMINE
     Route: 065
  177. MESALAMINE [Suspect]
     Active Substance: MESALAMINE
     Route: 065
  178. MESALAMINE [Suspect]
     Active Substance: MESALAMINE
     Dosage: 6 DF, QD
     Route: 065
  179. MESALAMINE [Suspect]
     Active Substance: MESALAMINE
     Dosage: 6 DF, QD
     Route: 065
  180. MESALAMINE [Suspect]
     Active Substance: MESALAMINE
     Route: 048
  181. MESALAMINE [Suspect]
     Active Substance: MESALAMINE
     Route: 065
  182. MESALAMINE [Suspect]
     Active Substance: MESALAMINE
     Route: 065
  183. MESALAMINE [Suspect]
     Active Substance: MESALAMINE
     Route: 048
  184. MESALAMINE [Suspect]
     Active Substance: MESALAMINE
     Dosage: UNK, QD
     Route: 048
  185. MESALAMINE [Suspect]
     Active Substance: MESALAMINE
     Indication: Product used for unknown indication
     Route: 048
  186. MESALAMINE [Suspect]
     Active Substance: MESALAMINE
     Route: 048
  187. MESALAMINE [Suspect]
     Active Substance: MESALAMINE
     Route: 048
  188. MESALAMINE [Suspect]
     Active Substance: MESALAMINE
     Route: 048
  189. MESALAMINE [Suspect]
     Active Substance: MESALAMINE
     Route: 048
  190. MESALAMINE [Suspect]
     Active Substance: MESALAMINE
     Route: 048
  191. MESALAMINE [Suspect]
     Active Substance: MESALAMINE
     Route: 065
  192. MESALAMINE [Suspect]
     Active Substance: MESALAMINE
     Route: 065
  193. MESALAMINE [Suspect]
     Active Substance: MESALAMINE
     Route: 065
  194. MESALAMINE [Suspect]
     Active Substance: MESALAMINE
     Route: 065
  195. MESALAMINE [Suspect]
     Active Substance: MESALAMINE
     Route: 065
  196. MESALAMINE [Suspect]
     Active Substance: MESALAMINE
     Route: 065
  197. MESALAMINE [Suspect]
     Active Substance: MESALAMINE
     Route: 065
  198. MESALAMINE [Suspect]
     Active Substance: MESALAMINE
     Route: 065
  199. MESALAMINE [Suspect]
     Active Substance: MESALAMINE
     Route: 065
  200. MESALAMINE [Suspect]
     Active Substance: MESALAMINE
     Route: 065
  201. MESALAMINE [Suspect]
     Active Substance: MESALAMINE
     Route: 065
  202. MESALAMINE [Suspect]
     Active Substance: MESALAMINE
     Route: 065
  203. MESALAMINE [Suspect]
     Active Substance: MESALAMINE
     Route: 065
  204. MESALAMINE [Suspect]
     Active Substance: MESALAMINE
     Route: 065
  205. MESALAMINE [Suspect]
     Active Substance: MESALAMINE
     Route: 065
  206. MESALAMINE [Suspect]
     Active Substance: MESALAMINE
     Route: 065
  207. MESALAMINE [Suspect]
     Active Substance: MESALAMINE
     Dosage: 2.4 G, QD
     Route: 065
  208. MESALAMINE [Suspect]
     Active Substance: MESALAMINE
     Dosage: 4.8 G, QD
     Route: 065
  209. MESALAMINE [Suspect]
     Active Substance: MESALAMINE
     Dosage: 6 DF, QD
     Route: 065
  210. MESALAMINE [Suspect]
     Active Substance: MESALAMINE
     Route: 065
  211. MESALAMINE [Suspect]
     Active Substance: MESALAMINE
     Route: 065
  212. MESALAMINE [Suspect]
     Active Substance: MESALAMINE
     Indication: Colitis ulcerative
     Route: 048
  213. OMEPRAZOLE [Suspect]
     Active Substance: OMEPRAZOLE
     Indication: Gastritis
     Route: 065
  214. OXYCODONE [Suspect]
     Active Substance: OXYCODONE
     Indication: Product used for unknown indication
     Route: 065
  215. PARA-AMINOSALICYLIC ACID [Suspect]
     Active Substance: AMINOSALICYLIC ACID
     Indication: Deep vein thrombosis
     Route: 048
  216. PARA-AMINOSALICYLIC ACID [Suspect]
     Active Substance: AMINOSALICYLIC ACID
     Indication: Product used for unknown indication
     Route: 048
  217. PARA-AMINOSALICYLIC ACID [Suspect]
     Active Substance: AMINOSALICYLIC ACID
     Indication: Colitis ulcerative
  218. PREDNISONE [Suspect]
     Active Substance: PREDNISONE
     Dosage: 40 MG, QD
     Route: 048
  219. PREDNISONE [Suspect]
     Active Substance: PREDNISONE
     Indication: Colitis ulcerative
     Dosage: 50 MG, QD
     Route: 065
  220. PREDNISONE [Suspect]
     Active Substance: PREDNISONE
     Route: 065
  221. PREDNISONE [Suspect]
     Active Substance: PREDNISONE
     Route: 065
  222. PREDNISONE [Suspect]
     Active Substance: PREDNISONE
     Route: 065
  223. PREDNISONE [Suspect]
     Active Substance: PREDNISONE
     Route: 065
  224. PREDNISONE [Suspect]
     Active Substance: PREDNISONE
     Route: 065
  225. PREDNISONE [Suspect]
     Active Substance: PREDNISONE
     Route: 065
  226. PREDNISONE [Suspect]
     Active Substance: PREDNISONE
     Route: 065
  227. PREDNISONE [Suspect]
     Active Substance: PREDNISONE
     Route: 065
  228. ROSUVASTATIN [Suspect]
     Active Substance: ROSUVASTATIN
     Indication: Ill-defined disorder
     Route: 065
  229. ROSUVASTATIN [Suspect]
     Active Substance: ROSUVASTATIN
     Indication: Blood cholesterol increased
  230. SULFASALAZINE [Suspect]
     Active Substance: SULFASALAZINE
     Indication: Arthritis
     Dosage: 3 MG, QD
     Route: 048
  231. SULFASALAZINE [Suspect]
     Active Substance: SULFASALAZINE
     Indication: Colitis ulcerative
     Dosage: 5 MG, QD
     Route: 048
  232. SULFASALAZINE [Suspect]
     Active Substance: SULFASALAZINE
     Route: 065
  233. SULFASALAZINE [Suspect]
     Active Substance: SULFASALAZINE
     Route: 065
  234. SULFASALAZINE [Suspect]
     Active Substance: SULFASALAZINE
     Route: 065
  235. SULFASALAZINE [Suspect]
     Active Substance: SULFASALAZINE
     Route: 065
  236. SULFASALAZINE [Suspect]
     Active Substance: SULFASALAZINE
     Route: 065
  237. SULFASALAZINE [Suspect]
     Active Substance: SULFASALAZINE
     Route: 065
  238. TOZINAMERAN [Suspect]
     Active Substance: TOZINAMERAN
     Indication: Product used for unknown indication
     Route: 065
  239. VEDOLIZUMAB [Suspect]
     Active Substance: VEDOLIZUMAB
     Dosage: UNK, QD
     Route: 048
  240. VEDOLIZUMAB [Suspect]
     Active Substance: VEDOLIZUMAB
     Indication: Colitis ulcerative
     Route: 042
  241. VEDOLIZUMAB [Suspect]
     Active Substance: VEDOLIZUMAB
     Route: 048
  242. VITAMIN D3 [Suspect]
     Active Substance: CHOLECALCIFEROL
     Indication: Product used for unknown indication
     Route: 065
  243. WARFARIN [Suspect]
     Active Substance: WARFARIN
     Indication: Colitis ulcerative
     Dosage: 1 DF, QD
     Route: 048
  244. WARFARIN [Suspect]
     Active Substance: WARFARIN
     Route: 048
  245. WARFARIN [Suspect]
     Active Substance: WARFARIN
     Route: 048
  246. WARFARIN [Suspect]
     Active Substance: WARFARIN
     Indication: Deep vein thrombosis
     Route: 065
  247. WARFARIN [Suspect]
     Active Substance: WARFARIN
     Route: 065
  248. WARFARIN [Suspect]
     Active Substance: WARFARIN
     Route: 065
  249. WARFARIN SODIUM [Suspect]
     Active Substance: WARFARIN SODIUM
     Indication: Deep vein thrombosis
     Route: 065
  250. WARFARIN SODIUM [Suspect]
     Active Substance: WARFARIN SODIUM
     Indication: Colitis ulcerative
  251. ACETAMINOPHEN [Concomitant]
     Active Substance: ACETAMINOPHEN
     Indication: Ill-defined disorder
     Route: 065
  252. ACETAMINOPHEN [Concomitant]
     Active Substance: ACETAMINOPHEN
     Indication: Ill-defined disorder
     Route: 065
  253. ALUMINUM HYDROXIDE [Concomitant]
     Active Substance: ALUMINUM HYDROXIDE
     Indication: Product used for unknown indication
     Route: 048
  254. AMLODIPINE BESYLATE [Concomitant]
     Active Substance: AMLODIPINE BESYLATE
     Indication: Product used for unknown indication
     Route: 065
  255. ATORVASTATIN CALCIUM [Concomitant]
     Active Substance: ATORVASTATIN CALCIUM
     Indication: Product used for unknown indication
     Route: 065
  256. BETNOVATE [Concomitant]
     Active Substance: BETAMETHASONE
     Indication: Product used for unknown indication
     Route: 065
  257. BISOPROLOL [Concomitant]
     Active Substance: BISOPROLOL
     Indication: Product used for unknown indication
     Route: 065
  258. CALCIUM CARBONATE\CHOLECALCIFEROL [Concomitant]
     Active Substance: CALCIUM CARBONATE\CHOLECALCIFEROL
     Indication: Product used for unknown indication
     Route: 065
  259. CALCIUM CARBONATE [Concomitant]
     Active Substance: CALCIUM CARBONATE
     Indication: Product used for unknown indication
     Route: 065
  260. CITALOPRAM HYDROCHLORIDE [Concomitant]
     Active Substance: CITALOPRAM HYDROCHLORIDE
     Indication: Product used for unknown indication
     Route: 065
  261. CLOBETASONE BUTYRATE [Concomitant]
     Active Substance: CLOBETASONE BUTYRATE
     Indication: Product used for unknown indication
     Route: 065
  262. DORZOLAMIDE HYDROCHLORIDE [Concomitant]
     Active Substance: DORZOLAMIDE HYDROCHLORIDE
     Indication: Product used for unknown indication
     Route: 065
  263. EMPAGLIFLOZIN [Concomitant]
     Active Substance: EMPAGLIFLOZIN
     Indication: Product used for unknown indication
     Route: 065
  264. FESOTERODINE FUMARATE [Concomitant]
     Active Substance: FESOTERODINE FUMARATE
     Indication: Product used for unknown indication
     Route: 065
  265. FESOTERODINE FUMARATE [Concomitant]
     Active Substance: FESOTERODINE FUMARATE
     Indication: Product used for unknown indication
     Route: 065
  266. FOLIC ACID [Concomitant]
     Active Substance: FOLIC ACID
     Indication: Product used for unknown indication
     Route: 065
  267. FOLIC ACID [Concomitant]
     Active Substance: FOLIC ACID
     Indication: Product used for unknown indication
     Route: 065
  268. HUMIRA [Concomitant]
     Active Substance: ADALIMUMAB
     Route: 065
  269. HUMIRA [Concomitant]
     Active Substance: ADALIMUMAB
     Route: 065
  270. HUMIRA [Concomitant]
     Active Substance: ADALIMUMAB
     Indication: Crohn^s disease
     Dosage: UNK, QD
     Route: 048
  271. HUMIRA [Concomitant]
     Active Substance: ADALIMUMAB
     Route: 048
  272. LANSOPRAZOLE [Concomitant]
     Active Substance: LANSOPRAZOLE
     Indication: Product used for unknown indication
     Route: 065
  273. LATANOPROST [Concomitant]
     Active Substance: LATANOPROST
     Indication: Product used for unknown indication
     Route: 065
  274. LYRICA [Concomitant]
     Active Substance: PREGABALIN
     Indication: Product used for unknown indication
     Route: 065
  275. POLYETHYLENE GLYCOLS [Concomitant]
     Active Substance: POLYETHYLENE GLYCOLS
     Indication: Product used for unknown indication
     Route: 065
  276. POLYETHYLENE GLYCOL 3350 [Concomitant]
     Active Substance: POLYETHYLENE GLYCOL 3350
     Indication: Product used for unknown indication
     Route: 065
  277. METHOTREXATE [Concomitant]
     Active Substance: METHOTREXATE
     Indication: Colitis ulcerative
     Route: 065
  278. METHOTREXATE [Concomitant]
     Active Substance: METHOTREXATE
     Route: 065
  279. METHOTREXATE [Concomitant]
     Active Substance: METHOTREXATE
     Route: 065
  280. NITROFURANTOIN [Concomitant]
     Active Substance: NITROFURANTOIN
     Indication: Product used for unknown indication
     Route: 065
  281. PARAFFIN [Concomitant]
     Active Substance: PARAFFIN
     Indication: Product used for unknown indication
     Route: 065
  282. PRAVASTATIN [Concomitant]
     Active Substance: PRAVASTATIN
     Indication: Product used for unknown indication
     Route: 065
  283. RAMIPRIL [Concomitant]
     Active Substance: RAMIPRIL
     Indication: Ill-defined disorder
     Route: 065
  284. RIVAROXABAN [Concomitant]
     Active Substance: RIVAROXABAN
     Indication: Product used for unknown indication
     Route: 065
  285. RIVAROXABAN [Concomitant]
     Active Substance: RIVAROXABAN
     Indication: Product used for unknown indication
     Route: 065
  286. TAMSULOSIN HYDROCHLORIDE [Concomitant]
     Active Substance: TAMSULOSIN HYDROCHLORIDE
     Indication: Product used for unknown indication
     Route: 065
  287. TOFACITINIB CITRATE [Concomitant]
     Active Substance: TOFACITINIB CITRATE
     Indication: Product used for unknown indication
     Route: 065
  288. XELJANZ [Concomitant]
     Active Substance: TOFACITINIB CITRATE
     Route: 065
  289. XELJANZ [Concomitant]
     Active Substance: TOFACITINIB CITRATE
     Indication: Colitis ulcerative
     Dosage: 5 MG, BID
     Route: 048

REACTIONS (11)
  - Catarrh [Not Recovered/Not Resolved]
  - Confusional state [Not Recovered/Not Resolved]
  - Dysgeusia [Not Recovered/Not Resolved]
  - Fatigue [Not Recovered/Not Resolved]
  - Gingival pain [Not Recovered/Not Resolved]
  - Alcohol poisoning [Unknown]
  - Eczema [Not Recovered/Not Resolved]
  - Depression [Not Recovered/Not Resolved]
  - Cerebrovascular accident [Not Recovered/Not Resolved]
  - Systemic lupus erythematosus [Not Recovered/Not Resolved]
  - Drug ineffective [Unknown]
